FAERS Safety Report 21826250 (Version 2)
Quarter: 2023Q1

REPORT INFORMATION
  Report Type: Spontaneous
  Country: US (occurrence: US)
  Receive Date: 20230106
  Receipt Date: 20230201
  Transmission Date: 20230417
  Serious: Yes (Hospitalization, Other)
  Sender: FDA-Public Use
  Company Number: US-CADILA HEALTHCARE LIMITED-US-ZYDUS-086463

PATIENT

DRUGS (2)
  1. BOSENTAN [Suspect]
     Active Substance: BOSENTAN
     Indication: Pulmonary arterial hypertension
     Dosage: 125 MILLIGRAM, BID
     Route: 048
     Dates: start: 20190801
  2. COVID-19 VACCINE NOS [Suspect]
     Active Substance: COVID-19 VACCINE NOS
     Indication: COVID-19 prophylaxis
     Dosage: UNK, UNK
     Route: 065

REACTIONS (7)
  - Viral infection [Recovered/Resolved]
  - Dehydration [Recovered/Resolved]
  - Vomiting [Recovered/Resolved]
  - Paralysis [Recovering/Resolving]
  - Fall [Recovered/Resolved]
  - Decreased appetite [Recovered/Resolved]
  - Immunisation reaction [Unknown]

NARRATIVE: CASE EVENT DATE: 20221205
